FAERS Safety Report 14207616 (Version 1)
Quarter: 2017Q4

REPORT INFORMATION
  Report Type: Spontaneous
  Country: US (occurrence: US)
  Receive Date: 20171121
  Receipt Date: 20171121
  Transmission Date: 20180321
  Serious: No
  Sender: FDA-Public Use
  Company Number: US-JNJFOC-20171027285

PATIENT
  Age: 75 Year
  Sex: Female
  Weight: 54.42 kg

DRUGS (10)
  1. CALCIUM [Concomitant]
     Active Substance: CALCIUM
  2. BIOTIN [Concomitant]
     Active Substance: BIOTIN
  3. NOVOLOG [Concomitant]
     Active Substance: INSULIN ASPART
  4. CYANOCOBALAMIN. [Concomitant]
     Active Substance: CYANOCOBALAMIN
  5. HYDROCHLOROTHIAZIDE. [Concomitant]
     Active Substance: HYDROCHLOROTHIAZIDE
  6. IMBRUVICA [Suspect]
     Active Substance: IBRUTINIB
     Indication: MANTLE CELL LYMPHOMA
     Dosage: 560 MG, QD
     Route: 048
     Dates: start: 20161102
  7. PRAVASTATIN. [Concomitant]
     Active Substance: PRAVASTATIN
  8. LEVEMIR [Concomitant]
     Active Substance: INSULIN DETEMIR
  9. TYLENOL [Concomitant]
     Active Substance: ACETAMINOPHEN
  10. POTASSIUM [Concomitant]
     Active Substance: POTASSIUM

REACTIONS (1)
  - Arthralgia [Not Recovered/Not Resolved]

NARRATIVE: CASE EVENT DATE: 201709
